FAERS Safety Report 4504475-9 (Version None)
Quarter: 2004Q4

REPORT INFORMATION
  Report Type: 
  Country: None (occurrence: None)
  Receive Date: 20041117
  Receipt Date: 20041117
  Transmission Date: 20050328
  Serious: Yes (Hospitalization)
  Sender: FDA-Public Use
  Company Number: None

PATIENT
  Age: 77 Year
  Sex: Male
  Weight: 90.3 kg

DRUGS (6)
  1. LEVOFLOXACIN [Suspect]
     Dosage: 250MG QD, BY MOUTH
     Dates: start: 20040720, end: 20040721
  2. POTASSIUM CHLORIDE SOLN [Concomitant]
  3. ALLOPURINOL TAB [Concomitant]
  4. OMEPRAZOLE (PRILOSEC FOR INPATIENT USE) CAP, SA [Concomitant]
  5. ATENOLOL [Concomitant]
  6. HYDROCHLOROTHIAZIDE [Concomitant]

REACTIONS (4)
  - NEPHRITIS [None]
  - RASH [None]
  - RENAL FAILURE ACUTE [None]
  - VASCULITIS [None]
